FAERS Safety Report 14627095 (Version 1)
Quarter: 2018Q1

REPORT INFORMATION
  Report Type: Spontaneous
  Country: GR (occurrence: GR)
  Receive Date: 20180312
  Receipt Date: 20180312
  Transmission Date: 20180509
  Serious: Yes (Hospitalization)
  Sender: FDA-Public Use
  Company Number: GR-ABBVIE-18K-066-2282961-00

PATIENT
  Age: 52 Year
  Sex: Male

DRUGS (1)
  1. HUMIRA [Suspect]
     Active Substance: ADALIMUMAB
     Indication: PSORIASIS
     Dosage: DURATION  MORE THAN A YEAR
     Route: 058

REACTIONS (2)
  - Coronary artery stenosis [Recovered/Resolved]
  - Ischaemia [Recovered/Resolved]

NARRATIVE: CASE EVENT DATE: 20180216
